FAERS Safety Report 10524085 (Version 1)
Quarter: 2014Q4

REPORT INFORMATION
  Report Type: Spontaneous
  Country: US (occurrence: None)
  Receive Date: 20141015
  Receipt Date: 20141015
  Transmission Date: 20150528
  Serious: Yes (Life-Threatening)
  Sender: FDA-Public Use
  Company Number: None

PATIENT
  Age: 70 Year
  Sex: Female
  Weight: 88.3 kg

DRUGS (4)
  1. KADIAN [Concomitant]
     Active Substance: MORPHINE SULFATE
  2. ENTEREG [Suspect]
     Active Substance: ALVIMOPAN
     Indication: POSTOPERATIVE ILEUS
     Route: 048
     Dates: start: 201308, end: 201408
  3. ENTEREG [Suspect]
     Active Substance: ALVIMOPAN
     Indication: PROPHYLAXIS
     Route: 048
     Dates: start: 201308, end: 201408
  4. PTATLOPIUM BROMED + ALBUTEROL 550-513 MG LIPLA (WATSON) [Concomitant]
     Active Substance: ALBUTEROL\IPRATROPIUM BROMIDE

REACTIONS (8)
  - Pain [None]
  - Anxiety [None]
  - Lethargy [None]
  - Somnolence [None]
  - Mental status changes [None]
  - Depressed level of consciousness [None]
  - Tremor [None]
  - Dyskinesia [None]

NARRATIVE: CASE EVENT DATE: 20140814
